FAERS Safety Report 8166203-8 (Version None)
Quarter: 2012Q1

REPORT INFORMATION
  Report Type: 
  Country: None (occurrence: None)
  Receive Date: 20120227
  Receipt Date: 20110601
  Transmission Date: 20120608
  Serious: No
  Sender: FDA-Public Use
  Company Number: US-MYLANLABS-2011S1009193

PATIENT
  Age: 17 Year
  Sex: Female

DRUGS (4)
  1. SOTRET [Suspect]
  2. AMNESTEEM [Suspect]
     Indication: ACNE
     Route: 048
     Dates: start: 20101201, end: 20110301
  3. SOTRET [Suspect]
     Indication: ACNE
  4. CLARAVIS [Suspect]
     Indication: ACNE

REACTIONS (4)
  - CONSTIPATION [None]
  - HAEMATOCHEZIA [None]
  - LIP DRY [None]
  - CHAPPED LIPS [None]
